FAERS Safety Report 19775019 (Version 1)
Quarter: 2021Q3

REPORT INFORMATION
  Report Type: Spontaneous
  Country: IE (occurrence: IE)
  Receive Date: 20210901
  Receipt Date: 20210901
  Transmission Date: 20211014
  Serious: Yes (Hospitalization)
  Sender: FDA-Public Use
  Company Number: IE-INCYTE CORPORATION-2021IN007716

PATIENT

DRUGS (1)
  1. JAKAVI [Suspect]
     Active Substance: RUXOLITINIB
     Indication: SEPSIS
     Dosage: 20 MG, BID
     Route: 048

REACTIONS (1)
  - Condition aggravated [Unknown]
